FAERS Safety Report 6396661-0 (Version None)
Quarter: 2009Q4

REPORT INFORMATION
  Report Type: 
  Country: None (occurrence: None)
  Receive Date: 20091012
  Receipt Date: 20091002
  Transmission Date: 20100525
  Serious: Yes (Death, Hospitalization)
  Sender: FDA-Public Use
  Company Number: US-ELI_LILLY_AND_COMPANY-US200909004665

PATIENT
  Sex: Male
  Weight: 67.574 kg

DRUGS (10)
  1. PEMETREXED [Suspect]
     Indication: NON-SMALL CELL LUNG CANCER
     Dosage: 744 MG, UNK
     Route: 042
     Dates: start: 20090618, end: 20090910
  2. GEMCITABINE HCL [Suspect]
     Indication: NON-SMALL CELL LUNG CANCER
     Dosage: 2232 MG, UNK
     Route: 042
     Dates: start: 20090618, end: 20090910
  3. BEVACIZUMAB [Suspect]
     Indication: NON-SMALL CELL LUNG CANCER
     Dosage: 700 MG, UNK
     Route: 042
     Dates: start: 20090618, end: 20090910
  4. FOLIC ACID [Concomitant]
     Dosage: 1 MG, UNK
     Route: 048
     Dates: start: 20090101, end: 20090916
  5. VITAMIN B-12 [Concomitant]
     Dosage: 1000 UG, UNK
     Route: 030
     Dates: start: 20090101, end: 20090827
  6. CILOSTAZOL [Concomitant]
     Dosage: 50 MG, DAILY (1/D)
     Route: 048
     Dates: start: 20050101
  7. FINASTERIDE [Concomitant]
     Dosage: 5 MG, DAILY (1/D)
     Route: 048
     Dates: start: 20040101
  8. FLUOXETINE [Concomitant]
     Dosage: 40 MG, DAILY (1/D)
     Route: 048
     Dates: start: 19910101
  9. LEVOTHYROXINE [Concomitant]
     Dosage: 50 UG, DAILY (1/D)
     Route: 048
     Dates: start: 20090501
  10. DEMECLOCYCLINE HCL [Concomitant]
     Dosage: 150 MG, 2/D
     Route: 048
     Dates: start: 20090101

REACTIONS (3)
  - ASTHENIA [None]
  - DEATH [None]
  - DYSPNOEA [None]
